FAERS Safety Report 25316957 (Version 1)
Quarter: 2025Q2

REPORT INFORMATION
  Report Type: Spontaneous
  Country: CA (occurrence: CA)
  Receive Date: 20250515
  Receipt Date: 20250515
  Transmission Date: 20250716
  Serious: Yes (Other)
  Sender: ROCHE
  Company Number: CA-ROCHE-10000278622

PATIENT
  Age: 56 Year
  Sex: Male

DRUGS (11)
  1. RITUXIMAB [Suspect]
     Active Substance: RITUXIMAB
     Indication: Multiple sclerosis
     Route: 065
  2. ENSPRYNG [Suspect]
     Active Substance: SATRALIZUMAB-MWGE
     Indication: Multiple sclerosis
     Route: 065
  3. MITOXANTRONE [Concomitant]
     Active Substance: MITOXANTRONE HYDROCHLORIDE
  4. DARATUMUMAB [Concomitant]
     Active Substance: DARATUMUMAB
  5. ACYCLOVIR [Concomitant]
     Active Substance: ACYCLOVIR
  6. ASCORBIC ACID [Concomitant]
     Active Substance: ASCORBIC ACID
  7. CALCIUM CARBONATE [Concomitant]
     Active Substance: CALCIUM CARBONATE
  8. CHOLECALCIFEROL [Concomitant]
     Active Substance: CHOLECALCIFEROL
  9. DENOSUMAB [Concomitant]
     Active Substance: DENOSUMAB
  10. LEVOTHYROXINE [Concomitant]
     Active Substance: LEVOTHYROXINE
  11. LORAZEPAM [Concomitant]
     Active Substance: LORAZEPAM

REACTIONS (8)
  - Feeling abnormal [Recovered/Resolved]
  - Sneezing [Recovered/Resolved]
  - Multiple sclerosis relapse [Unknown]
  - Visual impairment [Unknown]
  - Central nervous system lesion [Not Recovered/Not Resolved]
  - Treatment failure [Unknown]
  - Hemianopia homonymous [Unknown]
  - Anosognosia [Unknown]
